FAERS Safety Report 19418708 (Version 1)
Quarter: 2021Q2

REPORT INFORMATION
  Report Type: Spontaneous
  Country: US (occurrence: US)
  Receive Date: 20210615
  Receipt Date: 20210615
  Transmission Date: 20210717
  Serious: Yes (Hospitalization)
  Sender: FDA-Public Use
  Company Number: US-AZURITY PHARMACEUTICALS, INC.-2021AZY00054

PATIENT
  Sex: Male

DRUGS (1)
  1. EPANED [Suspect]
     Active Substance: ENALAPRIL MALEATE

REACTIONS (1)
  - Hospitalisation [Unknown]
